FAERS Safety Report 5441513-3 (Version None)
Quarter: 2007Q3

REPORT INFORMATION
  Report Type: 
  Country: None (occurrence: None)
  Receive Date: 20070829
  Receipt Date: 20070824
  Transmission Date: 20080115
  Serious: Yes (Hospitalization, Other)
  Sender: FDA-Public Use
  Company Number: 2007SP013995

PATIENT
  Age: 70 Year
  Sex: Female

DRUGS (3)
  1. TEMOZOLOMIDE [Suspect]
     Indication: GLIOBLASTOMA
     Dates: start: 20061201, end: 20070101
  2. FUNGIZONE [Concomitant]
  3. PARACETAMOL [Concomitant]

REACTIONS (3)
  - APLASIA [None]
  - HAEMORRHAGE [None]
  - THROMBOCYTOPENIC PURPURA [None]
